FAERS Safety Report 26213810 (Version 1)
Quarter: 2025Q4

REPORT INFORMATION
  Report Type: Spontaneous
  Country: EU (occurrence: EU)
  Receive Date: 20251230
  Receipt Date: 20251230
  Transmission Date: 20260117
  Serious: Yes (Life-Threatening, Hospitalization)
  Sender: MYLAN
  Company Number: None

PATIENT
  Age: 74 Year
  Sex: Female

DRUGS (13)
  1. CARDURA XL [Suspect]
     Active Substance: DOXAZOSIN MESYLATE
     Indication: Product used for unknown indication
     Dosage: DOSE: 1 UNIT UNKNOWN IN THE MORNING, 2 DOSE UNKNOWN IN THE EVENING, BID
  2. CLONIDINE [Suspect]
     Active Substance: CLONIDINE
     Indication: Product used for unknown indication
     Dosage: DOSE: 2 UNIT UNKNOWN, BID
  3. AUGMENTIN [Suspect]
     Active Substance: AMOXICILLIN\CLAVULANATE POTASSIUM
     Indication: Product used for unknown indication
     Dosage: UNK
  4. FUROSEMIDE [Suspect]
     Active Substance: FUROSEMIDE
     Indication: Product used for unknown indication
     Dosage: DOSE: 2 UNIT UNKNOWN, BID
  5. NEBIVOLOL HYDROCHLORIDE [Suspect]
     Active Substance: NEBIVOLOL HYDROCHLORIDE
     Indication: Product used for unknown indication
     Dosage: UNK
     Route: 061
  6. BECLOMETHASONE DIPROPIONATE\FORMOTEROL FUMARATE\GLYCOPYRROLATE [Suspect]
     Active Substance: BECLOMETHASONE DIPROPIONATE\FORMOTEROL FUMARATE\GLYCOPYRROLATE
     Indication: Product used for unknown indication
     Dosage: DOSE: 2 INHALATIONS, BID
  7. PRIMACOR [Concomitant]
     Active Substance: MILRINONE LACTATE
     Dosage: DOSE: 1 UNIT UNKNOWN, BID
  8. HUMALOG MIX50/50 [Concomitant]
     Active Substance: INSULIN LISPRO
     Dosage: 6J-12J-6J, Q8H
  9. Enterol [Concomitant]
     Dosage: UNK
  10. ATORVASTATIN CALCIUM [Concomitant]
     Active Substance: ATORVASTATIN CALCIUM
     Dosage: UNK
  11. FENOTEROL HYDROBROMIDE\IPRATROPIUM BROMIDE [Concomitant]
     Active Substance: FENOTEROL HYDROBROMIDE\IPRATROPIUM BROMIDE
     Dosage: UNK
  12. ALLOPURINOL [Concomitant]
     Active Substance: ALLOPURINOL
     Dosage: DOSE: 1 UNIT UNKNOWN, BID
  13. WARFARIN [Concomitant]
     Active Substance: WARFARIN
     Dosage: 8 MILLIGRAM, ACCORDING TO INR

REACTIONS (9)
  - Cardiac failure [Unknown]
  - Dyspnoea at rest [Unknown]
  - Visual impairment [Unknown]
  - Anaemia [Unknown]
  - Exercise tolerance decreased [Unknown]
  - Chest discomfort [Unknown]
  - Dyspnoea [Unknown]
  - Oedema peripheral [Unknown]
  - Dizziness [Unknown]

NARRATIVE: CASE EVENT DATE: 20220325
